FAERS Safety Report 7617862-7 (Version None)
Quarter: 2011Q3

REPORT INFORMATION
  Report Type: 
  Country: None (occurrence: None)
  Receive Date: 20110718
  Receipt Date: 20110711
  Transmission Date: 20111222
  Serious: Yes (Hospitalization, Other)
  Sender: FDA-Public Use
  Company Number: US-BAYER-201039972NA

PATIENT
  Age: 20 Year
  Sex: Female
  Weight: 61.224 kg

DRUGS (5)
  1. VICODIN [Concomitant]
  2. NAPROXEN [Concomitant]
     Dosage: 500 MG, UNK
  3. YAZ [Suspect]
     Indication: CONTRACEPTION
  4. YAZ [Suspect]
     Indication: ACNE
     Dosage: UNK UNK, UNK
     Route: 048
     Dates: start: 20080701, end: 20090801
  5. METOCLOPRAMIDE [Concomitant]

REACTIONS (3)
  - DYSPNOEA [None]
  - NON-CARDIAC CHEST PAIN [None]
  - PULMONARY EMBOLISM [None]
